FAERS Safety Report 7669340-7 (Version None)
Quarter: 2011Q3

REPORT INFORMATION
  Report Type: 
  Country: None (occurrence: None)
  Receive Date: 20110808
  Receipt Date: 20110803
  Transmission Date: 20111222
  Serious: Yes (Other)
  Sender: FDA-Public Use
  Company Number: GB-TEVA-294766ISR

PATIENT
  Age: 33 Year
  Sex: Male
  Weight: 68 kg

DRUGS (1)
  1. CLARITHROMYCIN [Suspect]
     Indication: RESPIRATORY TRACT INFECTION
     Dosage: 1000 MILLIGRAM;
     Route: 048
     Dates: start: 20110706, end: 20110717

REACTIONS (1)
  - DIPLOPIA [None]
